FAERS Safety Report 7471631-X (Version None)
Quarter: 2011Q2

REPORT INFORMATION
  Report Type: 
  Country: None (occurrence: None)
  Receive Date: 20110502
  Receipt Date: 20110421
  Transmission Date: 20111010
  Serious: Yes (Other)
  Sender: FDA-Public Use
  Company Number: 2010003696

PATIENT
  Age: 62 Year
  Sex: Female

DRUGS (3)
  1. TELMISARTAN [Suspect]
     Indication: HYPERTENSION
     Dosage: 80 MG
  2. ERLOTINIB HYDROCHLORIDE [Suspect]
     Indication: PANCREATIC CARCINOMA METASTATIC
     Dosage: 100 MG, QD, ORAL
     Route: 048
     Dates: start: 20100203
  3. GEMCITABINE [Suspect]
     Indication: PANCREATIC CARCINOMA METASTATIC
     Dosage: 750 MG/M2, QW), INTRAVENOUS
     Route: 042
     Dates: start: 20100203

REACTIONS (5)
  - FATIGUE [None]
  - RENAL TUBULAR NECROSIS [None]
  - DIARRHOEA [None]
  - DEHYDRATION [None]
  - HYPOTENSION [None]
